FAERS Safety Report 8861543 (Version 1)
Quarter: 2012Q4

REPORT INFORMATION
  Report Type: Spontaneous
  Country: US (occurrence: None)
  Receive Date: 20121024
  Receipt Date: 20121024
  Transmission Date: 20130627
  Serious: Yes (Life-Threatening)
  Sender: FDA-Public Use
  Company Number: 100917-020630

PATIENT

DRUGS (7)
  1. MEANINGFUL BEAUTY DAY CREAM SPF 20 [Suspect]
     Dates: start: 20100911, end: 20100917
  2. SYNTHROID [Concomitant]
  3. VENLAFAXINE [Concomitant]
  4. TOPAMAX [Concomitant]
  5. CENTRUM [Concomitant]
  6. VITAMIN C [Concomitant]
  7. VITAMINS [Suspect]

REACTIONS (6)
  - Erythema [None]
  - Inflammation [None]
  - Flushing [None]
  - Chest discomfort [None]
  - Dyspnoea [None]
  - Migraine [None]
